FAERS Safety Report 20057930 (Version 1)
Quarter: 2021Q4

REPORT INFORMATION
  Report Type: Report from Study
  Country: DE (occurrence: DE)
  Receive Date: 20211111
  Receipt Date: 20211111
  Transmission Date: 20220303
  Serious: Yes (Other)
  Sender: FDA-Public Use
  Company Number: DE-SA-SAC00000000035715

PATIENT
  Age: 52 Year
  Sex: Male
  Weight: 140 kg

DRUGS (8)
  1. ISATUXIMAB [Suspect]
     Active Substance: ISATUXIMAB
     Indication: Plasma cell myeloma
     Dosage: 10 MG/KG, QOW
     Route: 042
     Dates: start: 20190618, end: 20190618
  2. ISATUXIMAB [Suspect]
     Active Substance: ISATUXIMAB
     Dosage: 10 MG/KG, QW
     Route: 042
     Dates: start: 20190226, end: 20190226
  3. BORTEZOMIB [Suspect]
     Active Substance: BORTEZOMIB
     Indication: Plasma cell myeloma
     Dosage: 1.3 MG/M2;D1, 4, 8, 11, 22, 25, 29, 3
     Route: 058
     Dates: start: 20190621, end: 20190621
  4. BORTEZOMIB [Suspect]
     Active Substance: BORTEZOMIB
     Dosage: 1.3 MG/M2;D1, 4, 8, 11, 22, 25, 29, 3
     Route: 058
     Dates: start: 20190226, end: 20190226
  5. LENALIDOMIDE [Suspect]
     Active Substance: LENALIDOMIDE
     Indication: Plasma cell myeloma
     Dosage: 10 MG, QD
     Route: 048
     Dates: start: 20211003, end: 20211003
  6. LENALIDOMIDE [Suspect]
     Active Substance: LENALIDOMIDE
     Dosage: 10 MG, QD
     Route: 048
     Dates: start: 20190226, end: 20190226
  7. DEXAMETHASONE [Suspect]
     Active Substance: DEXAMETHASONE
     Indication: Plasma cell myeloma
     Dosage: 20 MG;D1-2, 4-5, 8-9, 11-12, 15, 22-23, 25-26, 29-30, 32-3
     Route: 048
     Dates: start: 20190621, end: 20190621
  8. DEXAMETHASONE [Suspect]
     Active Substance: DEXAMETHASONE
     Dosage: 20 MG;D1-2, 4-5, 8-9, 11-12, 15, 22-23, 25-26, 29-30, 32-3
     Route: 048
     Dates: start: 20190226, end: 20190226

REACTIONS (1)
  - Basal cell carcinoma [Not Recovered/Not Resolved]

NARRATIVE: CASE EVENT DATE: 20211021
